FAERS Safety Report 21648279 (Version 2)
Quarter: 2023Q1

REPORT INFORMATION
  Report Type: Spontaneous
  Country: US (occurrence: US)
  Receive Date: 20221128
  Receipt Date: 20230302
  Transmission Date: 20230418
  Serious: Yes (Hospitalization)
  Sender: FDA-Public Use
  Company Number: US-JNJFOC-20221144642

PATIENT
  Age: 33 Year
  Sex: Female
  Weight: 54.480 kg

DRUGS (3)
  1. REMICADE [Suspect]
     Active Substance: INFLIXIMAB
     Indication: Takayasu^s arteritis
     Route: 041
     Dates: start: 2002
  2. NIFEDIPINE [Concomitant]
     Active Substance: NIFEDIPINE
  3. PREDNISONE [Concomitant]
     Active Substance: PREDNISONE

REACTIONS (2)
  - Takayasu^s arteritis [Not Recovered/Not Resolved]
  - Off label use [Unknown]
